FAERS Safety Report 6936387-5 (Version None)
Quarter: 2010Q3

REPORT INFORMATION
  Report Type: 
  Country: None (occurrence: None)
  Receive Date: 20100817
  Receipt Date: 20100518
  Transmission Date: 20110219
  Serious: No
  Sender: FDA-Public Use
  Company Number: WAES 1005USA02524

PATIENT
  Age: 53 Year
  Sex: Female
  Weight: 66.2252 kg

DRUGS (12)
  1. ISENTRESS [Suspect]
     Indication: HIV INFECTION
     Dosage: 400 MG/BID/PO
     Route: 048
     Dates: start: 20100318, end: 20100506
  2. ADVAIR DISKUS 100/50 [Concomitant]
  3. COLACE [Concomitant]
  4. COMPAZINE [Concomitant]
  5. FLONASE [Concomitant]
  6. PRAVACHOL [Concomitant]
  7. TRUVADA [Concomitant]
  8. ACETAMINOPHEN [Concomitant]
  9. ALBUTEROL [Concomitant]
  10. IBUPROFEN [Concomitant]
  11. PSEUDOEPHEDRINE [Concomitant]
  12. RANITIDINE [Concomitant]

REACTIONS (3)
  - ARTHRALGIA [None]
  - EOSINOPHIL COUNT INCREASED [None]
  - OEDEMA PERIPHERAL [None]
